FAERS Safety Report 9462173 (Version 1)
Quarter: 2013Q3

REPORT INFORMATION
  Report Type: Spontaneous
  Country: US (occurrence: US)
  Receive Date: 20130816
  Receipt Date: 20130816
  Transmission Date: 20140515
  Serious: Yes (Death)
  Sender: FDA-Public Use
  Company Number: US-SANOFI-AVENTIS-2013SA081528

PATIENT
  Sex: Male

DRUGS (2)
  1. RIFAMPICIN [Suspect]
     Indication: LATENT TUBERCULOSIS
     Route: 065
     Dates: start: 2000, end: 200009
  2. PYRAZINAMIDE [Suspect]
     Indication: LATENT TUBERCULOSIS
     Route: 065
     Dates: start: 2000, end: 200009

REACTIONS (1)
  - Hepatitis [Fatal]
